FAERS Safety Report 6610381-6 (Version None)
Quarter: 2010Q1

REPORT INFORMATION
  Report Type: 
  Country: None (occurrence: None)
  Receive Date: 20100302
  Receipt Date: 20100218
  Transmission Date: 20100710
  Serious: Yes (Other)
  Sender: FDA-Public Use
  Company Number: ES-PFIZER INC-2008086803

PATIENT
  Age: 56 Year
  Sex: Female

DRUGS (10)
  1. LYRICA [Suspect]
     Indication: GENERALISED ANXIETY DISORDER
     Dosage: 25 MG, 1X/DAY
     Route: 048
     Dates: start: 20080701
  2. LYRICA [Suspect]
     Indication: NEURALGIA
     Dosage: UNK
     Route: 048
  3. LYRICA [Suspect]
     Indication: PAIN
     Dosage: UNK
     Route: 048
     Dates: end: 20090201
  4. CYMBALTA [Suspect]
     Indication: GENERALISED ANXIETY DISORDER
     Dosage: 25 MG, 1X/DAY
     Route: 048
     Dates: start: 20080701
  5. CYMBALTA [Suspect]
     Indication: NEURALGIA
     Dosage: UNK
     Dates: end: 20080828
  6. ZOLPIDEM [Concomitant]
     Dosage: 1/2 PER DAY
     Route: 048
  7. INDAPAMIDE [Concomitant]
     Dosage: 2.5 MG, 1X/DAY
     Route: 048
  8. MST [Concomitant]
     Dosage: 30 MG, 1X/DAY
     Route: 048
     Dates: end: 20080101
  9. ADOLONTA [Concomitant]
     Indication: PAIN
     Dosage: UNK
     Route: 048
  10. MAXALT [Concomitant]
     Indication: MIGRAINE
     Dosage: UNK
     Route: 048
     Dates: start: 20080101

REACTIONS (2)
  - HAEMATOMA [None]
  - VASCULAR SKIN DISORDER [None]
